FAERS Safety Report 21067095 (Version 1)
Quarter: 2022Q3

REPORT INFORMATION
  Report Type: Spontaneous
  Country: CA (occurrence: CA)
  Receive Date: 20220712
  Receipt Date: 20220712
  Transmission Date: 20221026
  Serious: Yes (Life-Threatening, Hospitalization)
  Sender: FDA-Public Use
  Company Number: ALC2022CA003194

PATIENT
  Age: 63 Year
  Sex: Male

DRUGS (1)
  1. FLUORESCEIN SODIUM [Suspect]
     Active Substance: FLUORESCEIN SODIUM
     Indication: Product used for unknown indication
     Dosage: UNK
     Route: 042

REACTIONS (5)
  - Hypoxia [Unknown]
  - Pulseless electrical activity [Unknown]
  - Anaphylactoid reaction [Unknown]
  - Hypotension [Unknown]
  - Cardiac arrest [Unknown]
